FAERS Safety Report 20380782 (Version 1)
Quarter: 2022Q1

REPORT INFORMATION
  Report Type: Other
  Country: GB (occurrence: GB)
  Receive Date: 20220127
  Receipt Date: 20220127
  Transmission Date: 20220423
  Serious: No
  Sender: FDA-Public Use
  Company Number: None

PATIENT
  Age: 33 Year
  Sex: Female
  Weight: 103 kg

DRUGS (13)
  1. SERTRALINE HYDROCHLORIDE [Suspect]
     Active Substance: SERTRALINE HYDROCHLORIDE
     Indication: Product used for unknown indication
     Dosage: 50 MILLIGRAM
     Route: 065
     Dates: start: 20211222
  2. AMITRIPTYLINE HYDROCHLORIDE [Concomitant]
     Active Substance: AMITRIPTYLINE HYDROCHLORIDE
     Indication: Product used for unknown indication
     Dosage: UNK, TAKE ONE AT NIGHT
     Route: 065
     Dates: start: 20211215, end: 20211225
  3. BETAMETHASONE VALERATE [Concomitant]
     Active Substance: BETAMETHASONE VALERATE
     Indication: Product used for unknown indication
     Dosage: UNK, APPLY SPARINGLY TO THE SCALP TWICE DAILY UNTIL ...
     Route: 065
     Dates: start: 20211103, end: 20211201
  4. CLARITHROMYCIN [Concomitant]
     Active Substance: CLARITHROMYCIN
     Indication: Product used for unknown indication
     Dosage: UNK, ONE TABLET TWICE DAILY
     Route: 065
     Dates: start: 20211012, end: 20211017
  5. CODEINE PHOSPHATE [Concomitant]
     Active Substance: CODEINE PHOSPHATE
     Indication: Pain
     Dosage: UNK TAKE ONE TABLET UPTO FOUR TIMES DAILY
     Route: 065
     Dates: start: 20211221
  6. METHYLPREDNISOLONE [Concomitant]
     Active Substance: METHYLPREDNISOLONE
     Indication: Product used for unknown indication
     Dosage: UNK USE AS DIRECTED
     Route: 065
     Dates: start: 20211222, end: 20211223
  7. DIAZEPAM [Concomitant]
     Active Substance: DIAZEPAM
     Indication: Product used for unknown indication
     Dosage: UNK ONE TABLET ONLY WHEN NEEDED, UPTO 3 TIMES/DAY. SHORT TERM ONLY; PROLONGED USE MAY LEAD TO DEPEND
     Route: 065
     Dates: start: 20211117, end: 20211124
  8. FOLIC ACID [Concomitant]
     Active Substance: FOLIC ACID
     Indication: Product used for unknown indication
     Dosage: UNK ONE TABLET ONCE DAILY
     Route: 065
     Dates: start: 20211116
  9. KETOCONAZOLE [Concomitant]
     Active Substance: KETOCONAZOLE
     Indication: Product used for unknown indication
     Dosage: UNK APPLY TWICE WEEKLY FOR 5 MINS AFTER A SHOWER
     Route: 065
     Dates: start: 20211221
  10. OMEPRAZOLE [Concomitant]
     Active Substance: OMEPRAZOLE
     Indication: Product used for unknown indication
     Dosage: UNK TAKE ONE DAILY AS NEEDED
     Route: 065
     Dates: start: 20210831
  11. PROMETHAZINE HYDROCHLORIDE [Concomitant]
     Active Substance: PROMETHAZINE HYDROCHLORIDE
     Indication: Product used for unknown indication
     Dosage: UNK ONE UP TO FOUR A DAY (40MG)
     Route: 065
     Dates: start: 20211027, end: 20211124
  12. QVAR [Concomitant]
     Active Substance: BECLOMETHASONE DIPROPIONATE
     Indication: Asthma prophylaxis
     Dosage: UNK INHALE ONE DOSE TWICE DAILY TO PREVENT ASTHMA. ...
     Route: 065
     Dates: start: 20180130
  13. ALBUTEROL [Concomitant]
     Active Substance: ALBUTEROL
     Indication: Product used for unknown indication
     Dosage: UNK 2 PUFFS AS NEEDED
     Route: 065
     Dates: start: 20180130

REACTIONS (3)
  - Anxiety [Unknown]
  - Drug hypersensitivity [Unknown]
  - Condition aggravated [Unknown]

NARRATIVE: CASE EVENT DATE: 20211222
